FAERS Safety Report 5326790-1 (Version None)
Quarter: 2007Q2

REPORT INFORMATION
  Report Type: 
  Country: None (occurrence: None)
  Receive Date: 20070516
  Receipt Date: 20070507
  Transmission Date: 20071010
  Serious: Yes (Other)
  Sender: FDA-Public Use
  Company Number: AU-PFIZER INC-2007037299

PATIENT
  Sex: Male

DRUGS (3)
  1. ZOLOFT [Suspect]
     Indication: POST-TRAUMATIC STRESS DISORDER
  2. ZOLOFT [Suspect]
     Indication: DEPRESSION
  3. SULFASALAZINE [Concomitant]

REACTIONS (2)
  - GASTROINTESTINAL HAEMORRHAGE [None]
  - RECTAL HAEMORRHAGE [None]
